FAERS Safety Report 10494370 (Version 1)
Quarter: 2014Q4

REPORT INFORMATION
  Report Type: Spontaneous
  Country: DE (occurrence: None)
  Receive Date: 20141001
  Receipt Date: 20141001
  Transmission Date: 20150528
  Serious: Yes (Congenital Anomaly, Other)
  Sender: FDA-Public Use
  Company Number: 2014090069

PATIENT
  Age: 1 Day
  Sex: Male

DRUGS (5)
  1. TORASEMIDE (TORASEMIDE) [Suspect]
     Active Substance: TORSEMIDE
     Dosage: (10 MG, 1 IN 1 D)
     Route: 064
  2. MIRTAZAPIN (MIRTAZAPINE) [Suspect]
     Active Substance: MIRTAZAPINE
     Route: 064
  3. METHADONE [Suspect]
     Active Substance: METHADONE HYDROCHLORIDE
     Route: 064
     Dates: start: 20130403, end: 20140117
  4. ASS 100 (ACETYLSALICYLIC ACID) [Concomitant]
  5. SPIROBETA (SPIRONOLACTONE) [Suspect]
     Active Substance: SPIRONOLACTONE
     Dosage: (50 MG, 1 IN 1 D)
     Route: 064

REACTIONS (10)
  - Neonatal respiratory distress syndrome [None]
  - Maternal drugs affecting foetus [None]
  - Cardiac failure [None]
  - Patent ductus arteriosus [None]
  - Atrial septal defect [None]
  - Caesarean section [None]
  - Small for dates baby [None]
  - Drug withdrawal syndrome neonatal [None]
  - Foetal heart rate deceleration abnormality [None]
  - Coarctation of the aorta [None]

NARRATIVE: CASE EVENT DATE: 20140117
